FAERS Safety Report 22063082 (Version 2)
Quarter: 2023Q1

REPORT INFORMATION
  Report Type: Spontaneous
  Country: US (occurrence: US)
  Receive Date: 20230306
  Receipt Date: 20230323
  Transmission Date: 20230417
  Serious: No
  Sender: FDA-Public Use
  Company Number: US-GSK-US2023AMR031780

PATIENT
  Sex: Female

DRUGS (1)
  1. BENLYSTA [Suspect]
     Active Substance: BELIMUMAB
     Indication: Systemic lupus erythematosus
     Dosage: 10 MG/KG, Z, EVERY 4 WEEKS
     Route: 042

REACTIONS (4)
  - Illness [Unknown]
  - Ill-defined disorder [Unknown]
  - Drug ineffective [Unknown]
  - Product dose omission issue [Unknown]
